FAERS Safety Report 23411220 (Version 2)
Quarter: 2024Q1

REPORT INFORMATION
  Report Type: Report from Study
  Country: AT (occurrence: AT)
  Receive Date: 20240117
  Receipt Date: 20240125
  Transmission Date: 20240409
  Serious: Yes (Other)
  Sender: FDA-Public Use
  Company Number: AT-PFM-2023-07184

PATIENT
  Age: 61 Year
  Sex: Male
  Weight: 80 kg

DRUGS (16)
  1. ENCORAFENIB [Suspect]
     Active Substance: ENCORAFENIB
     Indication: Malignant melanoma
     Dosage: 450 MG, DAILY
     Route: 048
     Dates: start: 20190711, end: 20220826
  2. ENCORAFENIB [Suspect]
     Active Substance: ENCORAFENIB
     Dosage: 450 MG, QD (1/DAY)
     Route: 048
     Dates: start: 20220905
  3. BINIMETINIB [Suspect]
     Active Substance: BINIMETINIB
     Indication: Malignant melanoma
     Dosage: 45 MG, BID (2/DAY)
     Route: 048
     Dates: start: 20190711, end: 20220826
  4. BINIMETINIB [Suspect]
     Active Substance: BINIMETINIB
     Dosage: 45 MG, BID (2/DAY)
     Route: 048
     Dates: start: 20220905
  5. CHOLECALCIFEROL [Concomitant]
     Active Substance: CHOLECALCIFEROL
     Indication: Prophylaxis
     Dosage: UNK
     Route: 065
  6. BISOPROLOL FUMARATE [Concomitant]
     Active Substance: BISOPROLOL FUMARATE
     Dosage: UNK
     Route: 065
  7. SERTRALINE HYDROCHLORIDE [Concomitant]
     Active Substance: SERTRALINE HYDROCHLORIDE
     Dosage: UNK
     Route: 065
     Dates: start: 20180831, end: 20200205
  8. ISOCONAZOLE NITRATE [Concomitant]
     Active Substance: ISOCONAZOLE NITRATE
     Indication: Macule
     Dosage: UNK
     Route: 065
     Dates: start: 20210114, end: 20210119
  9. SPIKEVAX [Concomitant]
     Dosage: UNK
     Route: 065
     Dates: start: 20210325
  10. SPIKEVAX [Concomitant]
     Dosage: UNK
     Route: 065
     Dates: start: 20210422
  11. SPIKEVAX [Concomitant]
     Dosage: UNK
     Route: 065
     Dates: start: 20211022
  12. MICETAL [Concomitant]
     Indication: Nail dystrophy
     Dosage: UNK
     Route: 065
     Dates: start: 20210827, end: 20211215
  13. AMOROLFINE HYDROCHLORIDE [Concomitant]
     Active Substance: AMOROLFINE HYDROCHLORIDE
     Indication: Nail dystrophy
     Dosage: UNK (NAIL LACQUER)
     Route: 065
     Dates: start: 20210827, end: 20211215
  14. OPTIDERM [DEXPANTHENOL;HYDROCORTISONE] [Concomitant]
     Indication: Dry skin
     Dosage: UNK
     Route: 065
     Dates: start: 20220406, end: 20230904
  15. DUCRAY KELUAL DS [Concomitant]
     Indication: Erythema
     Dosage: UNK
     Route: 065
     Dates: start: 20220504, end: 20220531
  16. METHYLPREDNISOLONE ACEPONATE [Concomitant]
     Active Substance: METHYLPREDNISOLONE ACEPONATE
     Indication: Erythema
     Dosage: UNK (SOLUTION)
     Route: 065
     Dates: start: 20220601, end: 20220615

REACTIONS (5)
  - Large intestinal ulcer [Unknown]
  - Colitis [Unknown]
  - Subacute cutaneous lupus erythematosus [Not Recovered/Not Resolved]
  - Photodermatosis [Unknown]
  - Anaemia [Recovered/Resolved]

NARRATIVE: CASE EVENT DATE: 20220310
